FAERS Safety Report 22697737 (Version 3)
Quarter: 2023Q4

REPORT INFORMATION
  Report Type: Spontaneous
  Country: JP (occurrence: JP)
  Receive Date: 20230712
  Receipt Date: 20231026
  Transmission Date: 20240110
  Serious: Yes (Hospitalization)
  Sender: FDA-Public Use
  Company Number: JP-TAIHOP-2023-005416

PATIENT
  Age: 46 Year
  Sex: Female
  Weight: 57.7 kg

DRUGS (9)
  1. LONSURF [Suspect]
     Active Substance: TIPIRACIL HYDROCHLORIDE\TRIFLURIDINE
     Indication: Colon cancer
     Dosage: CYCLE UNKNOWN.
     Route: 048
     Dates: start: 20230530, end: 20230618
  2. LONSURF [Suspect]
     Active Substance: TIPIRACIL HYDROCHLORIDE\TRIFLURIDINE
     Indication: Colorectal cancer
  3. BEVACIZUMAB [Suspect]
     Active Substance: BEVACIZUMAB
     Indication: Colon cancer
     Dosage: UNKNOWN
  4. PEMAFIBRATE [Suspect]
     Active Substance: PEMAFIBRATE
     Indication: Hyperlipidaemia
     Route: 048
  5. TELTHIA [Concomitant]
     Indication: Hypertension
     Dosage: DOSE: 1 TABLET
     Route: 048
  6. VONOPRAZAN FUMARATE [Concomitant]
     Active Substance: VONOPRAZAN FUMARATE
     Indication: Gastrooesophageal reflux disease
     Route: 048
  7. KOTARO DAIKENCHUTO [Concomitant]
     Indication: Abdominal distension
     Dosage: POWDER
     Route: 048
  8. HYDROMORPHONE HYDROCHLORIDE [Concomitant]
     Active Substance: HYDROMORPHONE HYDROCHLORIDE
     Indication: Cancer pain
     Dosage: AS NEEDED
     Route: 048
  9. FUROSEMIDE [Concomitant]
     Active Substance: FUROSEMIDE
     Indication: Swelling
     Dosage: AS NEEDED WHEN SWELLING
     Route: 048

REACTIONS (10)
  - Musculoskeletal pain [Recovering/Resolving]
  - Nausea [Unknown]
  - Abdominal pain [Unknown]
  - Abdominal pain upper [Unknown]
  - Hydronephrosis [Unknown]
  - Dizziness [Unknown]
  - Arthralgia [Unknown]
  - Decreased appetite [Unknown]
  - Malaise [Unknown]
  - Inappropriate schedule of product administration [Unknown]

NARRATIVE: CASE EVENT DATE: 20230605
